FAERS Safety Report 19209528 (Version 2)
Quarter: 2021Q2

REPORT INFORMATION
  Report Type: Spontaneous
  Country: JP (occurrence: JP)
  Receive Date: 20210503
  Receipt Date: 20210527
  Transmission Date: 20210717
  Serious: Yes (Hospitalization)
  Sender: FDA-Public Use
  Company Number: JP-B.I. PHARMACEUTICALS,INC./RIDGEFIELD-2021-BI-100370

PATIENT
  Age: 8 Decade
  Sex: Male
  Weight: 62 kg

DRUGS (3)
  1. MITIGLINIDE CALCIUM [Suspect]
     Active Substance: MITIGLINIDE CALCIUM ANHYDROUS
     Indication: DIABETES MELLITUS
     Route: 048
  2. JARDIANCE [Suspect]
     Active Substance: EMPAGLIFLOZIN
     Indication: DIABETES MELLITUS
     Route: 048
  3. VOGLIBOSE [Suspect]
     Active Substance: VOGLIBOSE
     Indication: DIABETES MELLITUS
     Route: 048

REACTIONS (5)
  - Abdominal pain [Unknown]
  - Malaise [Unknown]
  - Nausea [Unknown]
  - Decreased appetite [Unknown]
  - Dehydration [Unknown]
